FAERS Safety Report 14573551 (Version 1)
Quarter: 2018Q1

REPORT INFORMATION
  Report Type: Spontaneous
  Country: GB (occurrence: GB)
  Receive Date: 20180226
  Receipt Date: 20180226
  Transmission Date: 20180509
  Serious: Yes (Other)
  Sender: FDA-Public Use
  Company Number: GB-PFIZER INC-2018078236

PATIENT
  Age: 78 Year
  Sex: Female
  Weight: 77 kg

DRUGS (13)
  1. ACCRETE D3 [Concomitant]
     Dosage: 2 DF, 1X/DAY
     Dates: start: 20151119
  2. LOSARTAN. [Concomitant]
     Active Substance: LOSARTAN
     Dosage: 1 DF, 1X/DAY
     Dates: start: 20170808
  3. PREDNISOLONE. [Concomitant]
     Active Substance: PREDNISOLONE
     Dosage: 4 DF, 1X/DAY
     Dates: start: 20151006
  4. METHOTREXATE. [Concomitant]
     Active Substance: METHOTREXATE
     Dosage: 20 MG, WEEKLY
     Dates: start: 20170428
  5. FOLIC ACID. [Concomitant]
     Active Substance: FOLIC ACID
     Dosage: 6 DF, 1X/DAY
     Dates: start: 20140602
  6. ATORVASTATIN [Concomitant]
     Active Substance: ATORVASTATIN
     Dosage: 1 DF, 1X/DAY (AT NIGHT)
     Dates: start: 20140602
  7. DOXYCYCLINE MONOHYDRATE [Suspect]
     Active Substance: DOXYCYCLINE
     Dosage: UNK
     Dates: start: 20180129
  8. FOSTAIR [Concomitant]
     Active Substance: BECLOMETHASONE\FORMOTEROL
     Dosage: 4 DF, 1X/DAY
     Dates: start: 20141015
  9. EKLIRA GENUAIR [Concomitant]
     Active Substance: ACLIDINIUM BROMIDE
     Dosage: 2 DF, 1X/DAY
     Route: 055
     Dates: start: 20160210
  10. PARACETAMOL [Concomitant]
     Active Substance: ACETAMINOPHEN
     Dosage: 2 TO BE TAKEN FOUR TIMES DAILY PRN, MAX. OF 8/DAY
     Dates: start: 20170428
  11. SALAMOL /00139501/ [Concomitant]
     Dosage: 2 DF, AS NEEDED
     Route: 055
     Dates: start: 20150309
  12. CODEINE PHOSPHATE [Concomitant]
     Active Substance: CODEINE PHOSPHATE
     Dosage: TAKE 1-2 TABLETS UP TO FOUR TIMES A DAY
     Dates: start: 20150112
  13. SALAZOPYRIN [Concomitant]
     Active Substance: SULFASALAZINE
     Dosage: 4 DF, 1X/DAY
     Dates: start: 20171017

REACTIONS (3)
  - Swollen tongue [Recovering/Resolving]
  - Swelling [Recovering/Resolving]
  - Pharyngeal oedema [Recovering/Resolving]

NARRATIVE: CASE EVENT DATE: 20180129
